FAERS Safety Report 18449058 (Version 2)
Quarter: 2021Q2

REPORT INFORMATION
  Report Type: Spontaneous
  Country: US (occurrence: US)
  Receive Date: 20201030
  Receipt Date: 20210613
  Transmission Date: 20210717
  Serious: No
  Sender: FDA-Public Use
  Company Number: US-TEVA-2020-US-1843413

PATIENT
  Age: 62 Year
  Sex: Female

DRUGS (4)
  1. MEDROXYPROGESTERONE ACETATE. [Concomitant]
     Active Substance: MEDROXYPROGESTERONE ACETATE
     Dosage: 1 TABLET PER BY MOUTH AND SHE FOLLOWS THAT ORDER OF THE DOSE PACK
     Route: 048
  2. NUVIGIL [Suspect]
     Active Substance: ARMODAFINIL
     Indication: NARCOLEPSY
     Route: 065
  3. ESTROGEN [Concomitant]
     Active Substance: ESTROGENS
     Dosage: 14 MAROON TABLETS 0.625 MG CONJUGATED ESTROGEN THEN 14 LIGHT BLUE TABLETS 0.625 MG THE LIGHT BLUE TA
     Route: 065
  4. PREMPHASE [Concomitant]
     Active Substance: ESTROGENS, CONJUGATED\MEDROXYPROGESTERONE ACETATE
     Route: 065

REACTIONS (3)
  - Product dose omission issue [Unknown]
  - Confusional state [Unknown]
  - Impaired driving ability [Unknown]
